FAERS Safety Report 7089471-2 (Version None)
Quarter: 2010Q4

REPORT INFORMATION
  Report Type: 
  Country: None (occurrence: None)
  Receive Date: 20101108
  Receipt Date: 20101028
  Transmission Date: 20110411
  Serious: Yes (Hospitalization)
  Sender: FDA-Public Use
  Company Number: FR-JNJFOC-20101100898

PATIENT
  Sex: Male

DRUGS (8)
  1. RISPERDAL [Suspect]
     Indication: BIPOLAR I DISORDER
     Route: 048
  2. MEPRONIZINE [Interacting]
     Indication: BIPOLAR I DISORDER
     Route: 048
  3. THERALENE [Interacting]
     Indication: BIPOLAR I DISORDER
     Route: 048
  4. RIVOTRIL [Interacting]
     Indication: BIPOLAR I DISORDER
     Route: 048
  5. PARIET [Concomitant]
     Route: 065
  6. KARDEGIC [Concomitant]
     Route: 065
  7. PLAVIX [Concomitant]
     Route: 065
  8. AVLOCARDYL [Concomitant]
     Route: 065

REACTIONS (3)
  - DEPRESSED LEVEL OF CONSCIOUSNESS [None]
  - DRUG INTERACTION [None]
  - MUSCULAR WEAKNESS [None]
